FAERS Safety Report 5107301-2 (Version None)
Quarter: 2006Q3

REPORT INFORMATION
  Report Type: 
  Country: None (occurrence: None)
  Receive Date: 20060912
  Receipt Date: 20060831
  Transmission Date: 20061208
  Serious: Yes (Other)
  Sender: FDA-Public Use
  Company Number: HQWYE038428APR06

PATIENT
  Age: 39 Year
  Sex: Female

DRUGS (7)
  1. PANTOPRAZOLE SODIUM [Suspect]
     Dosage: 20 MG 1X PER 1 DAY
     Route: 048
     Dates: start: 20060107, end: 20060215
  2. LECICARBON  (LECITHIN/SODIUM BICARBONATE/SODIUM PHOSPHATE MONOBASIC,) [Suspect]
     Dosage: 1 DOSAGE FROM 1X PER 1 DAY
     Route: 054
     Dates: start: 20060327, end: 20060330
  3. MAGALDRATE             (MAGALDRATE) [Suspect]
     Dosage: 800 MG 1X PER 1 DAY
     Route: 048
  4. MOVICOL (MACRGOL/POTASSIUM CHLORIDE/SODIUM BICARBONATE/SODIUM CHLORIDE [Suspect]
     Dosage: 1 DOSAGE FROM 1X PER 1 DAY
     Route: 048
     Dates: start: 20060312, end: 20060318
  5. TRANSIPEG (MACROGOL) [Concomitant]
  6. HERBAL PREPARATION (HERBAL PREPARATION) [Concomitant]
  7. NEO CITRAN    (ASCORBIC ACID/PARACETAMOL/PHENIRAMINE MALEATE/PHENYLEPH [Suspect]
     Dosage: 1 DOSAGE FORM 1 X 1 PER DAY
     Route: 048
     Dates: start: 20060404, end: 20060404

REACTIONS (2)
  - ABORTION SPONTANEOUS [None]
  - DRUG EXPOSURE DURING PREGNANCY [None]
